FAERS Safety Report 17457515 (Version 1)
Quarter: 2020Q1

REPORT INFORMATION
  Report Type: Spontaneous
  Country: MX (occurrence: MX)
  Receive Date: 20200225
  Receipt Date: 20200225
  Transmission Date: 20200409
  Serious: Yes (Death)
  Sender: FDA-Public Use
  Company Number: MX-ROCHE-2556028

PATIENT
  Age: 44 Year
  Sex: Male
  Weight: 97 kg

DRUGS (1)
  1. MABTHERA [Suspect]
     Active Substance: RITUXIMAB
     Indication: DIFFUSE LARGE B-CELL LYMPHOMA
     Route: 042
     Dates: start: 20200114, end: 20200126

REACTIONS (2)
  - Respiratory failure [Fatal]
  - Influenza [Fatal]

NARRATIVE: CASE EVENT DATE: 20200126
